FAERS Safety Report 5977674-7 (Version None)
Quarter: 2008Q4

REPORT INFORMATION
  Report Type: 
  Country: None (occurrence: None)
  Receive Date: 20081203
  Receipt Date: 20081126
  Transmission Date: 20090506
  Serious: Yes (Life-Threatening)
  Sender: FDA-Public Use
  Company Number: MY-AVENTIS-200821062GDDC

PATIENT
  Age: 24 Year

DRUGS (3)
  1. ARAVA [Suspect]
     Indication: RHEUMATOID ARTHRITIS
     Route: 048
     Dates: start: 20080601, end: 20081101
  2. METHOTREXATE [Suspect]
     Dosage: DOSE: UNK
     Route: 048
     Dates: end: 20081101
  3. PANADOL                            /00020001/ [Suspect]
     Dosage: DOSE: UNK
     Route: 048
     Dates: end: 20081101

REACTIONS (2)
  - HEPATOTOXICITY [None]
  - RASH [None]
